FAERS Safety Report 5035991-1 (Version None)
Quarter: 2006Q2

REPORT INFORMATION
  Report Type: 
  Country: None (occurrence: None)
  Receive Date: 20060526
  Receipt Date: 20060221
  Transmission Date: 20061013
  Serious: Yes (Life-Threatening)
  Sender: FDA-Public Use
  Company Number: 222314

PATIENT
  Age: 45 Year
  Sex: Male
  Weight: 63.5 kg

DRUGS (2)
  1. RAPTIVA [Suspect]
     Indication: DERMATITIS ATOPIC
     Dosage: 64 MG, 1/WEEK, SUBCUTANEOUS
     Route: 058
     Dates: start: 20051024, end: 20060220
  2. PUVA (PHOTOTHERAPY, PSORALEN) [Concomitant]

REACTIONS (1)
  - WHITE BLOOD CELL COUNT INCREASED [None]
